FAERS Safety Report 6792833-1 (Version None)
Quarter: 2010Q2

REPORT INFORMATION
  Report Type: 
  Country: None (occurrence: None)
  Receive Date: 20100624
  Receipt Date: 20081015
  Transmission Date: 20101027
  Serious: Yes (Other)
  Sender: FDA-Public Use
  Company Number: US-PFIZER INC-2008081784

PATIENT
  Age: 38 Year
  Sex: Female

DRUGS (5)
  1. GEODON [Suspect]
     Indication: MAJOR DEPRESSION
     Dates: start: 20070701, end: 20080401
  2. DOSTINEX [Concomitant]
  3. WELLBUTRIN XL [Concomitant]
     Dates: start: 20071201, end: 20080501
  4. SEROQUEL [Concomitant]
     Dates: start: 20070301, end: 20070601
  5. ZYPREXA [Concomitant]
     Dates: start: 20070601, end: 20070901

REACTIONS (5)
  - CHOREA [None]
  - MUSCLE TWITCHING [None]
  - MYALGIA [None]
  - TARDIVE DYSKINESIA [None]
  - TREMOR [None]
